FAERS Safety Report 5125042-2 (Version None)
Quarter: 2006Q4

REPORT INFORMATION
  Report Type: 
  Country: None (occurrence: None)
  Receive Date: 20061010
  Receipt Date: 20061010
  Transmission Date: 20070319
  Serious: Yes (Hospitalization)
  Sender: FDA-Public Use
  Company Number: None

PATIENT
  Age: 45 Year
  Sex: Male

DRUGS (8)
  1. DILANTIN [Suspect]
     Indication: CONVULSION
     Dosage: 300 MG QHS
     Dates: start: 20030701
  2. TENOFOVIR [Concomitant]
  3. SYTHROID [Concomitant]
  4. DIDANOSINE [Concomitant]
  5. FOSAMPRENAVIR [Concomitant]
  6. LAMIVUDINE [Concomitant]
  7. ACYCLOVIR [Concomitant]
  8. AZITHROMYCIN [Concomitant]

REACTIONS (2)
  - ABASIA [None]
  - DYSARTHRIA [None]
